FAERS Safety Report 21244149 (Version 9)
Quarter: 2022Q4

REPORT INFORMATION
  Report Type: Spontaneous
  Country: AR (occurrence: AR)
  Receive Date: 20220823
  Receipt Date: 20221219
  Transmission Date: 20230113
  Serious: Yes (Hospitalization, Other)
  Sender: FDA-Public Use
  Company Number: AR-NOVARTISPH-NVSC2022AR184951

PATIENT
  Age: 78 Year
  Sex: Male
  Weight: 79 kg

DRUGS (16)
  1. LEUPROLIDE ACETATE [Suspect]
     Active Substance: LEUPROLIDE ACETATE
     Indication: Prostate cancer metastatic
     Dosage: 22.5 MG, Q3W, EVERY 21 DAYS
     Route: 065
     Dates: start: 20220425
  2. ENZALUTAMIDE [Suspect]
     Active Substance: ENZALUTAMIDE
     Indication: Prostate cancer metastatic
     Dosage: 40 MG, Q3W, EVERY 21 DAYS
     Route: 048
     Dates: start: 20220425
  3. ENALAPRIL MALEATE\HYDROCHLOROTHIAZIDE [Concomitant]
     Active Substance: ENALAPRIL MALEATE\HYDROCHLOROTHIAZIDE
     Indication: Arteriosclerosis coronary artery
     Dosage: UNK
     Route: 065
     Dates: start: 19991201
  4. ATEL [Concomitant]
     Indication: Arteriosclerosis coronary artery
     Dosage: UNK
     Route: 065
     Dates: start: 19991201
  5. ALPRAZOLAM [Concomitant]
     Active Substance: ALPRAZOLAM
     Indication: Insomnia
     Dosage: UNK
     Route: 065
     Dates: start: 19991201
  6. SINLIP [Concomitant]
     Indication: Arteriosclerosis coronary artery
     Dosage: UNK
     Route: 065
     Dates: start: 19991201
  7. URALOS [Concomitant]
     Indication: Benign prostatic hyperplasia
     Dosage: UNK
     Route: 065
     Dates: start: 20151201
  8. TRUSOPT [Concomitant]
     Active Substance: DORZOLAMIDE HYDROCHLORIDE
     Indication: Glaucoma
     Dosage: UNK
     Route: 065
     Dates: start: 19801201
  9. LOUTEN [Concomitant]
     Indication: Glaucoma
     Dosage: UNK
     Route: 065
     Dates: start: 19991201
  10. DEXAMETHASONE [Concomitant]
     Active Substance: DEXAMETHASONE
     Indication: Product used for unknown indication
     Dosage: UNK UNK, QD
     Route: 048
     Dates: start: 20220424, end: 20220425
  11. DEXAMETHASONE [Concomitant]
     Active Substance: DEXAMETHASONE
     Dosage: 4 MG, QD
     Route: 048
     Dates: start: 20220426, end: 20220427
  12. DEXAMETHASONE [Concomitant]
     Active Substance: DEXAMETHASONE
     Dosage: 4 MG, QD
     Route: 048
     Dates: start: 20220515, end: 20220516
  13. ABIRATERONE [Concomitant]
     Active Substance: ABIRATERONE
     Indication: Product used for unknown indication
     Dosage: UNK UNK, QID
     Route: 065
     Dates: start: 20220505
  14. PREDNISONE [Concomitant]
     Active Substance: PREDNISONE
     Indication: Product used for unknown indication
     Dosage: UNK UNK, QD
     Route: 065
  15. CONTROL K [Concomitant]
     Indication: Product used for unknown indication
     Dosage: UNK, TID
     Route: 065
     Dates: start: 20220517, end: 20220527
  16. BICALUTAMIDE [Concomitant]
     Active Substance: BICALUTAMIDE
     Indication: Product used for unknown indication
     Dosage: 50 MG, QD
     Route: 065
     Dates: start: 20221129

REACTIONS (19)
  - COVID-19 pneumonia [Unknown]
  - Atrial fibrillation [Recovered/Resolved]
  - Acute kidney injury [Recovered/Resolved]
  - Neutropenia [Recovered/Resolved]
  - Neutropenia [Recovered/Resolved]
  - Thrombocytopenia [Unknown]
  - Osteochondrosis [Unknown]
  - Bronchiectasis [Unknown]
  - Osteoarthritis [Unknown]
  - Intensive care unit acquired weakness [Recovered/Resolved with Sequelae]
  - Muscular weakness [Unknown]
  - Polyuria [Unknown]
  - Eschar [Unknown]
  - Arteriosclerosis [Unknown]
  - Emphysema [Unknown]
  - Gynaecomastia [Unknown]
  - Tracheobronchitis [Unknown]
  - Diarrhoea [Unknown]
  - Anaemia [Unknown]

NARRATIVE: CASE EVENT DATE: 20220527
